FAERS Safety Report 6796247-X (Version None)
Quarter: 2010Q2

REPORT INFORMATION
  Report Type: 
  Country: None (occurrence: None)
  Receive Date: 20100624
  Receipt Date: 20100624
  Transmission Date: 20101027
  Serious: Yes (Life-Threatening)
  Sender: FDA-Public Use
  Company Number: None

PATIENT
  Age: 67 Year
  Sex: Male
  Weight: 76 kg

DRUGS (1)
  1. EPTIFIBATIDE [Suspect]
     Indication: CORONARY ARTERIAL STENT INSERTION
     Dosage: IV
     Route: 042
     Dates: start: 20100407, end: 20100411

REACTIONS (3)
  - ANAEMIA [None]
  - GASTRIC HAEMORRHAGE [None]
  - HYPOTENSION [None]
